FAERS Safety Report 5189702-X (Version None)
Quarter: 2006Q4

REPORT INFORMATION
  Report Type: 
  Country: None (occurrence: None)
  Receive Date: 20061218
  Receipt Date: 20051003
  Transmission Date: 20070319
  Serious: Yes (Other)
  Sender: FDA-Public Use
  Company Number: 2005137749

PATIENT
  Age: 30 Year
  Sex: Female

DRUGS (1)
  1. DINOPROSTONE GEL (DINOPROSTONE) [Suspect]
     Indication: LABOUR INDUCTION
     Dosage: 0.25 MG (0.25 MG, SINGLE)

REACTIONS (21)
  - ACTIVATED PARTIAL THROMBOPLASTIN TIME PROLONGED [None]
  - ANAEMIA POSTOPERATIVE [None]
  - CAESAREAN SECTION [None]
  - DRUG EXPOSURE DURING PREGNANCY [None]
  - DRUG INEFFECTIVE [None]
  - DYSPNOEA [None]
  - HYPOCOAGULABLE STATE [None]
  - HYSTERECTOMY [None]
  - NAUSEA [None]
  - OBSTETRICAL PULMONARY EMBOLISM [None]
  - OPERATIVE HAEMORRHAGE [None]
  - PARAESTHESIA [None]
  - PARAESTHESIA ORAL [None]
  - POST PROCEDURAL COMPLICATION [None]
  - PROTHROMBIN TIME PROLONGED [None]
  - THERAPY NON-RESPONDER [None]
  - THROMBOCYTOPENIA [None]
  - UTERINE CONTRACTIONS ABNORMAL [None]
  - UTERINE HAEMORRHAGE [None]
  - UTERINE SPASM [None]
  - VOMITING [None]
